FAERS Safety Report 6896418-8 (Version None)
Quarter: 2010Q3

REPORT INFORMATION
  Report Type: 
  Country: None (occurrence: None)
  Receive Date: 20100802
  Receipt Date: 20090213
  Transmission Date: 20110219
  Serious: No
  Sender: FDA-Public Use
  Company Number: US-PFIZER INC-2009171984

PATIENT
  Sex: Female

DRUGS (5)
  1. NEURONTIN [Suspect]
     Dosage: 800 MG, 3X/DAY
     Dates: start: 20040709, end: 20050203
  2. GABAPENTIN [Suspect]
     Dosage: 800 MG, 3X/DAY
     Dates: start: 20050203
  3. TRAMADOL HYDROCHLORIDE [Concomitant]
     Dosage: UNK
  4. HYDROCODONE BITARTRATE [Concomitant]
     Dosage: UNK
  5. CARISOPRODOL [Concomitant]
     Dosage: UNK

REACTIONS (1)
  - DRUG ABUSE [None]
